FAERS Safety Report 9888135 (Version 1)
Quarter: 2014Q1

REPORT INFORMATION
  Report Type: Spontaneous
  Country: US (occurrence: None)
  Receive Date: 20140210
  Receipt Date: 20140210
  Transmission Date: 20141002
  Serious: No
  Sender: FDA-Public Use
  Company Number: None

PATIENT
  Age: 6 Year
  Sex: Female
  Weight: 18.6 kg

DRUGS (2)
  1. CEFDINIR [Suspect]
     Indication: BACTERIAL INFECTION
     Dosage: 1 TEASPOON, TAKEN BY MOUTH
     Dates: start: 20140130, end: 20140131
  2. AZITHROMYCIN [Suspect]
     Indication: BACTERIAL INFECTION
     Dosage: TAKEN BY MOUTH
     Dates: start: 20140204, end: 20140205

REACTIONS (8)
  - Nasopharyngitis [None]
  - Chills [None]
  - Pyrexia [None]
  - Diarrhoea [None]
  - Muscle spasms [None]
  - Fatigue [None]
  - Abdominal pain upper [None]
  - Decreased appetite [None]
